FAERS Safety Report 8421198-4 (Version None)
Quarter: 2012Q2

REPORT INFORMATION
  Report Type: 
  Country: None (occurrence: None)
  Receive Date: 20120604
  Receipt Date: 20120604
  Transmission Date: 20120825
  Serious: Yes (Disabling)
  Sender: FDA-Public Use
  Company Number: None

PATIENT
  Age: 78 Year
  Sex: Male

DRUGS (1)
  1. AMIODARONE HCL [Suspect]
     Indication: VENTRICULAR TACHYCARDIA
     Dosage: 200 MG BID PO
     Route: 048
     Dates: start: 20100114, end: 20110517

REACTIONS (4)
  - PAPILLOEDEMA [None]
  - VISUAL IMPAIRMENT [None]
  - SCOTOMA [None]
  - TOXICITY TO VARIOUS AGENTS [None]
